FAERS Safety Report 25428849 (Version 1)
Quarter: 2025Q2

REPORT INFORMATION
  Report Type: Spontaneous
  Country: US (occurrence: US)
  Receive Date: 20250612
  Receipt Date: 20250612
  Transmission Date: 20250717
  Serious: Yes (Other)
  Sender: Day One Biopharmaceuticals
  Company Number: US-Day One Biopharmaceuticals Inc.-2025US000879

PATIENT

DRUGS (1)
  1. OJEMDA [Suspect]
     Active Substance: TOVORAFENIB
     Indication: Astrocytoma, low grade
     Dosage: 21 ML, QW
     Route: 048
     Dates: start: 20250302, end: 20250525

REACTIONS (2)
  - Intracranial tumour haemorrhage [Recovering/Resolving]
  - Disease progression [Recovering/Resolving]
